FAERS Safety Report 18076578 (Version 1)
Quarter: 2020Q3

REPORT INFORMATION
  Report Type: Report from Study
  Country: US (occurrence: US)
  Receive Date: 20200727
  Receipt Date: 20200727
  Transmission Date: 20201103
  Serious: Yes (Death)
  Sender: FDA-Public Use
  Company Number: US-EXELIXIS-CABO-20031540

PATIENT
  Sex: Male
  Weight: 125.17 kg

DRUGS (2)
  1. RAPAMUNE [Concomitant]
     Active Substance: SIROLIMUS
     Dosage: UNK
  2. CABOMETYX [Suspect]
     Active Substance: CABOZANTINIB S-MALATE
     Indication: HEPATOCELLULAR CARCINOMA
     Dosage: 40 MG, QD
     Route: 048
     Dates: start: 20200203

REACTIONS (1)
  - Death [Fatal]
